FAERS Safety Report 16166008 (Version 1)
Quarter: 2019Q2

REPORT INFORMATION
  Report Type: Spontaneous
  Country: ES (occurrence: ES)
  Receive Date: 20190406
  Receipt Date: 20190406
  Transmission Date: 20190711
  Serious: Yes (Hospitalization)
  Sender: FDA-Public Use
  Company Number: ES-TAKEDA-2019TEU003462

PATIENT
  Age: 45 Year
  Sex: Male

DRUGS (1)
  1. ALOGLIPTIN, METFORMIN [Suspect]
     Active Substance: ALOGLIPTIN BENZOATE\METFORMIN HYDROCHLORIDE
     Indication: TYPE 2 DIABETES MELLITUS
     Dosage: 12.5/850 MILLIGRAM, Q12H
     Route: 048
     Dates: start: 20180123

REACTIONS (3)
  - Abdominal pain [Recovering/Resolving]
  - Pancreatic enzymes [Recovering/Resolving]
  - Hepatic enzyme increased [Recovering/Resolving]

NARRATIVE: CASE EVENT DATE: 20190228
